FAERS Safety Report 17128333 (Version 2)
Quarter: 2021Q4

REPORT INFORMATION
  Report Type: Spontaneous
  Country: US (occurrence: US)
  Receive Date: 20191209
  Receipt Date: 20211129
  Transmission Date: 20220303
  Serious: No
  Sender: FDA-Public Use
  Company Number: US-UCBSA-2017004547

PATIENT
  Age: 59 Year
  Sex: Male

DRUGS (3)
  1. VIMPAT [Suspect]
     Active Substance: LACOSAMIDE
     Indication: Epilepsy
     Dosage: HALF A PILL
     Route: 048
     Dates: start: 20120301
  2. VIMPAT [Suspect]
     Active Substance: LACOSAMIDE
     Dosage: WHOLE PILL
     Route: 048
  3. VIMPAT [Suspect]
     Active Substance: LACOSAMIDE
     Dosage: 1 DF, 2X/DAY (BID)
     Route: 048

REACTIONS (6)
  - Night sweats [Unknown]
  - Sinus disorder [Not Recovered/Not Resolved]
  - Adverse event [Unknown]
  - Drug ineffective [Unknown]
  - Off label use [Unknown]
  - Pharyngitis streptococcal [Unknown]

NARRATIVE: CASE EVENT DATE: 20120301
